FAERS Safety Report 7450260-8 (Version None)
Quarter: 2011Q1

REPORT INFORMATION
  Report Type: 
  Country: None (occurrence: None)
  Receive Date: 20110302
  Receipt Date: 20101207
  Transmission Date: 20110831
  Serious: No
  Sender: FDA-Public Use
  Company Number: 023394

PATIENT
  Sex: Male
  Weight: 88.5 kg

DRUGS (3)
  1. LEXAPRO [Concomitant]
  2. CIMZIA [Suspect]
     Indication: CROHN'S DISEASE
     Dosage: 400 MG 1X/4  WEEKS SUBCUTANEOUS
     Route: 058
     Dates: start: 20100901
  3. AMBIEN CR [Concomitant]

REACTIONS (2)
  - MIDDLE INSOMNIA [None]
  - ANXIETY [None]
